FAERS Safety Report 4451643-0 (Version None)
Quarter: 2004Q3

REPORT INFORMATION
  Report Type: 
  Country: None (occurrence: None)
  Receive Date: 20040915
  Receipt Date: 20040831
  Transmission Date: 20050211
  Serious: Yes (Disabling)
  Sender: FDA-Public Use
  Company Number: 04H-083-0272129-00

PATIENT
  Age: 59 Year
  Sex: Female

DRUGS (2)
  1. HEPARIN SODIUM [Suspect]
     Indication: ANTICOAGULANT THERAPY
     Dosage: INTRAVENOUS
     Route: 042
  2. ALTEPLASE [Suspect]
     Indication: THROMBOLYSIS
     Dosage: 100 MG, 1 IN1 D, INTRAVENOUS
     Route: 042

REACTIONS (2)
  - EXTRADURAL HAEMATOMA [None]
  - PARAPARESIS [None]
